FAERS Safety Report 11157956 (Version 2)
Quarter: 2015Q4

REPORT INFORMATION
  Report Type: Spontaneous
  Country: CN (occurrence: CN)
  Receive Date: 20150603
  Receipt Date: 20151208
  Transmission Date: 20160304
  Serious: Yes (Death, Other)
  Sender: FDA-Public Use
  Company Number: CN-CIPLA LTD.-2015CN04478

PATIENT

DRUGS (5)
  1. GEMCITABINE [Suspect]
     Active Substance: GEMCITABINE\GEMCITABINE HYDROCHLORIDE
     Indication: LEIOMYOSARCOMA RECURRENT
     Dosage: 900 MG/M2 CONTINUOUS INTRAVENOUS INFUSION FOR 90 MIN, ON DAY 1 AND DAY 8; EVERY 21 DAYS FOR 2 CYCLES
     Route: 042
  2. DOCETAXEL. [Suspect]
     Active Substance: DOCETAXEL
     Indication: LEIOMYOSARCOMA METASTATIC
  3. DEXAMETHASONE. [Suspect]
     Active Substance: DEXAMETHASONE
     Dosage: 8 MG, BID BEFORE 1 DAY OF DOCETAXEL TREATMENT AND POST 1 DAY OF TREATMENT FOR 2 CYCLES
     Route: 048
  4. GEMCITABINE [Suspect]
     Active Substance: GEMCITABINE\GEMCITABINE HYDROCHLORIDE
     Indication: LEIOMYOSARCOMA METASTATIC
  5. DOCETAXEL. [Suspect]
     Active Substance: DOCETAXEL
     Indication: LEIOMYOSARCOMA RECURRENT
     Dosage: 75 MG/M2 ON DAY 8; REPEATED EVERY 21 DAYS FOR 2 CYCLES
     Route: 042

REACTIONS (3)
  - Leiomyosarcoma [Fatal]
  - Metastases to liver [Unknown]
  - Disease progression [Unknown]
